FAERS Safety Report 4555765-5 (Version None)
Quarter: 2005Q1

REPORT INFORMATION
  Report Type: 
  Country: None (occurrence: None)
  Receive Date: 20050118
  Receipt Date: 20041005
  Transmission Date: 20050727
  Serious: No
  Sender: FDA-Public Use
  Company Number: A03200403422

PATIENT

DRUGS (1)
  1. UROXATRAL [Suspect]
     Dosage: 10 MG BID ORAL
     Route: 048

REACTIONS (2)
  - DRUG INEFFECTIVE [None]
  - PRESCRIBED OVERDOSE [None]
